FAERS Safety Report 16129346 (Version 1)
Quarter: 2019Q1

REPORT INFORMATION
  Report Type: Report from Study
  Country: US (occurrence: US)
  Receive Date: 20190328
  Receipt Date: 20190328
  Transmission Date: 20190418
  Serious: Yes (Hospitalization, Other)
  Sender: FDA-Public Use
  Company Number: US-GILEAD-2019-0399181

PATIENT
  Age: 37 Year
  Sex: Female

DRUGS (16)
  1. SODIUM CHLORIDE. [Concomitant]
     Active Substance: SODIUM CHLORIDE
  2. XARELTO [Concomitant]
     Active Substance: RIVAROXABAN
  3. ALBUTEROL SULFATE. [Concomitant]
     Active Substance: ALBUTEROL SULFATE
  4. AZTREONAM LYSINE [Suspect]
     Active Substance: AZTREONAM LYSINE
     Indication: CYSTIC FIBROSIS
     Dosage: 1 VIAL TID X28, OFF 28 DAYS
     Route: 055
     Dates: start: 20140107
  5. VENTOLIN [Concomitant]
     Active Substance: ALBUTEROL SULFATE
  6. PROPRANOLOL [Concomitant]
     Active Substance: PROPRANOLOL HYDROCHLORIDE
  7. HYDROCODONE BITARTRATE AND ACETAMINOPHEN [Concomitant]
     Active Substance: ACETAMINOPHEN\HYDROCODONE BITARTRATE
  8. VITAMIN D2 [Concomitant]
     Active Substance: ERGOCALCIFEROL
  9. CYMBALTA [Concomitant]
     Active Substance: DULOXETINE HYDROCHLORIDE
  10. PULMOZYME [Concomitant]
     Active Substance: DORNASE ALFA
  11. CREON [Concomitant]
     Active Substance: PANCRELIPASE AMYLASE\PANCRELIPASE LIPASE\PANCRELIPASE PROTEASE
  12. OXALIPLATIN. [Concomitant]
     Active Substance: OXALIPLATIN
  13. PRAMIPEXOLE. [Concomitant]
     Active Substance: PRAMIPEXOLE
  14. PARI [Concomitant]
  15. TOBRAMYCIN. [Concomitant]
     Active Substance: TOBRAMYCIN
  16. FLUOROURACIL. [Concomitant]
     Active Substance: FLUOROURACIL

REACTIONS (1)
  - Cystic fibrosis [Unknown]

NARRATIVE: CASE EVENT DATE: 20190304
